FAERS Safety Report 15591792 (Version 1)
Quarter: 2018Q4

REPORT INFORMATION
  Report Type: Spontaneous
  Country: US (occurrence: US)
  Receive Date: 20181102
  Receipt Date: 20181102
  Transmission Date: 20190205
  Serious: No
  Sender: FDA-Public Use
  Company Number: None

PATIENT
  Age: 99 Year
  Sex: Male

DRUGS (11)
  1. VOLTAREN [Concomitant]
     Active Substance: DICLOFENAC SODIUM
  2. COLCHICINE. [Concomitant]
     Active Substance: COLCHICINE
  3. NORCO [Concomitant]
     Active Substance: ACETAMINOPHEN\HYDROCODONE BITARTRATE
  4. TYLENOL [Concomitant]
     Active Substance: ACETAMINOPHEN
  5. GLYBURIDE. [Concomitant]
     Active Substance: GLYBURIDE
  6. CETIRIZINE [Concomitant]
     Active Substance: CETIRIZINE HYDROCHLORIDE
  7. PREDNISONE. [Concomitant]
     Active Substance: PREDNISONE
  8. PANTOPRAZOLE [Concomitant]
     Active Substance: PANTOPRAZOLE
  9. ZYTIGA [Suspect]
     Active Substance: ABIRATERONE ACETATE
     Indication: PROSTATE CANCER
     Route: 048
     Dates: start: 20180215
  10. NITROSTAT [Concomitant]
     Active Substance: NITROGLYCERIN
  11. ALLOPURINOL. [Concomitant]
     Active Substance: ALLOPURINOL

REACTIONS (3)
  - Product dose omission [None]
  - Gastric disorder [None]
  - Urinary tract infection [None]
